FAERS Safety Report 16988661 (Version 1)
Quarter: 2019Q4

REPORT INFORMATION
  Report Type: Spontaneous
  Country: US (occurrence: US)
  Receive Date: 20191104
  Receipt Date: 20191104
  Transmission Date: 20200122
  Serious: No
  Sender: FDA-Public Use
  Company Number: US-MYLANLABS-2019M1100189

PATIENT
  Sex: Male
  Weight: 95 kg

DRUGS (2)
  1. WIXELA INHUB [Suspect]
     Active Substance: FLUTICASONE PROPIONATE\SALMETEROL XINAFOATE
     Indication: ASBESTOSIS
  2. WIXELA INHUB [Suspect]
     Active Substance: FLUTICASONE PROPIONATE\SALMETEROL XINAFOATE
     Indication: PNEUMOTHORAX
     Dosage: UNK UNK, BID
     Route: 048

REACTIONS (3)
  - Dyspnoea [Recovered/Resolved]
  - Drug ineffective [Unknown]
  - Device malfunction [Unknown]
